FAERS Safety Report 24226123 (Version 1)
Quarter: 2024Q3

REPORT INFORMATION
  Report Type: Spontaneous
  Country: IN (occurrence: IN)
  Receive Date: 20240820
  Receipt Date: 20240820
  Transmission Date: 20241017
  Serious: Yes (Other)
  Sender: UNIQUE PHARMACEUTICALS
  Company Number: IN-UNIQUE PHARMACEUTICAL LABORATORIES-20240800108

PATIENT

DRUGS (5)
  1. CETIRIZINE HYDROCHLORIDE [Suspect]
     Active Substance: CETIRIZINE HYDROCHLORIDE
     Indication: Urticaria
     Dosage: UNKNOWN
     Route: 065
  2. LORATADINE [Suspect]
     Active Substance: LORATADINE
     Indication: Urticaria
     Dosage: UNKNOWN
     Route: 065
  3. FEXOFENADINE HYDROCHLORIDE [Suspect]
     Active Substance: FEXOFENADINE HYDROCHLORIDE
     Indication: Urticaria
     Dosage: UNKNOWN
     Route: 065
  4. LEVOCETIRIZINE [Suspect]
     Active Substance: LEVOCETIRIZINE
     Indication: Urticaria
     Dosage: UNKNOWN
     Route: 065
  5. HYDROXYZINE [Suspect]
     Active Substance: HYDROXYZINE HYDROCHLORIDE
     Indication: Urticaria
     Dosage: UNKNOWN
     Route: 065

REACTIONS (1)
  - Generalised bullous fixed drug eruption [Unknown]
